FAERS Safety Report 17224304 (Version 3)
Quarter: 2020Q3

REPORT INFORMATION
  Report Type: Spontaneous
  Country: GR (occurrence: GR)
  Receive Date: 20200102
  Receipt Date: 20200819
  Transmission Date: 20201102
  Serious: Yes (Other)
  Sender: FDA-Public Use
  Company Number: GR-MYLANLABS-2019M1131348

PATIENT
  Age: 44 Year
  Sex: Male

DRUGS (18)
  1. ALFACALCIDOL [Concomitant]
     Active Substance: ALFACALCIDOL
     Indication: HYPOCALCAEMIA
  2. VITAMIN D3 [Concomitant]
     Active Substance: CHOLECALCIFEROL
     Indication: HUNGRY BONE SYNDROME
     Dosage: 4000 INTERNATIONAL UNIT
  3. CALCIUM CARBONATE/VITAMIN D3 [Concomitant]
     Active Substance: CALCIUM CARBONATE\CHOLECALCIFEROL
     Indication: HYPOCALCAEMIA
     Dosage: 2 DOSAGE FORM
     Route: 065
  4. MAGNESIUM [Concomitant]
     Active Substance: MAGNESIUM
     Indication: HUNGRY BONE SYNDROME
     Dosage: UNK
  5. MAGNESIUM [Concomitant]
     Active Substance: MAGNESIUM
     Indication: BLOOD MAGNESIUM ABNORMAL
  6. ALFACALCIDOL [Concomitant]
     Active Substance: ALFACALCIDOL
     Indication: HUNGRY BONE SYNDROME
     Dosage: 1 MICROGRAM
     Route: 065
  7. CINACALCET HYDROCHLORIDE. [Suspect]
     Active Substance: CINACALCET HYDROCHLORIDE
     Indication: HYPERPARATHYROIDISM PRIMARY
     Dosage: 180 MILLIGRAM, QD (DOSE INCREASED 60 MILLIGRAM, TID)
     Route: 065
  8. CINACALCET HYDROCHLORIDE. [Suspect]
     Active Substance: CINACALCET HYDROCHLORIDE
     Dosage: 30 MILLIGRAM, 0.5 DAY
     Route: 065
  9. ALENDRONATE [Suspect]
     Active Substance: ALENDRONATE SODIUM
     Indication: BONE DENSITY DECREASED
     Dosage: 70 MILLIGRAM, QWK
     Route: 065
  10. CALCIUM CARBONATE/VITAMIN D3 [Concomitant]
     Active Substance: CALCIUM CARBONATE\CHOLECALCIFEROL
     Indication: BLOOD PARATHYROID HORMONE INCREASED
     Dosage: 1000MG/880 IU, BID
     Route: 065
  11. VITAMIN D3 [Concomitant]
     Active Substance: CHOLECALCIFEROL
     Indication: HYPOCALCAEMIA
     Dosage: 2000 INTERNATIONAL UNIT
  12. MAGNESIUM [Concomitant]
     Active Substance: MAGNESIUM
     Indication: HYPERCALCAEMIA
     Dosage: 243 MILLIGRAM
     Route: 065
  13. CALCIUM CARBONATE. [Concomitant]
     Active Substance: CALCIUM CARBONATE
     Indication: HUNGRY BONE SYNDROME
     Dosage: 4 GRAM, QD
     Route: 065
  14. CINACALCET HYDROCHLORIDE. [Suspect]
     Active Substance: CINACALCET HYDROCHLORIDE
     Indication: HYPERCALCAEMIA
     Dosage: 60 MILLIGRAM, QD
     Route: 065
  15. VITAMIN D3 [Concomitant]
     Active Substance: CHOLECALCIFEROL
     Dosage: 1600 INTERNATIONAL UNIT
  16. MAGNESIUM [Concomitant]
     Active Substance: MAGNESIUM
     Indication: MINERAL SUPPLEMENTATION
  17. CALCIUM CARBONATE. [Concomitant]
     Active Substance: CALCIUM CARBONATE
     Indication: HYPOCALCAEMIA
     Dosage: 2 GRAM, QD
     Route: 065
  18. CALCIUM CARBONATE/VITAMIN D3 [Concomitant]
     Active Substance: CALCIUM CARBONATE\CHOLECALCIFEROL
     Dosage: 1 DOSAGE FORM, 0.5 DAY

REACTIONS (9)
  - Hungry bone syndrome [Unknown]
  - Blood magnesium decreased [Unknown]
  - Hypocalcaemia [Unknown]
  - Drug ineffective [Unknown]
  - Blood phosphorus decreased [Unknown]
  - Blood parathyroid hormone increased [Unknown]
  - Symptom masked [Unknown]
  - Blood 25-hydroxycholecalciferol decreased [Unknown]
  - Therapy non-responder [Unknown]
